FAERS Safety Report 7011053-9 (Version None)
Quarter: 2010Q3

REPORT INFORMATION
  Report Type: 
  Country: None (occurrence: None)
  Receive Date: 20100923
  Receipt Date: 20081014
  Transmission Date: 20110219
  Serious: No
  Sender: FDA-Public Use
  Company Number: US-WYE-H06397408

PATIENT
  Age: 70 Year
  Sex: Male

DRUGS (1)
  1. ADVIL COLD AND SINUS [Suspect]
     Indication: HYPERSENSITIVITY

REACTIONS (4)
  - EYE PRURITUS [None]
  - LACRIMATION INCREASED [None]
  - RHINORRHOEA [None]
  - SNEEZING [None]
